FAERS Safety Report 4963017-4 (Version None)
Quarter: 2006Q2

REPORT INFORMATION
  Report Type: 
  Country: None (occurrence: None)
  Receive Date: 20060405
  Receipt Date: 20060322
  Transmission Date: 20061013
  Serious: Yes (Life-Threatening, Hospitalization)
  Sender: FDA-Public Use
  Company Number: PT-JNJFOC-20060305998

PATIENT
  Sex: Female

DRUGS (5)
  1. SPORANOX [Suspect]
     Indication: ECZEMA
     Route: 048
     Dates: start: 20030917, end: 20030920
  2. EBASTINE [Suspect]
     Indication: PRURITUS
     Route: 048
     Dates: start: 20030917, end: 20030920
  3. ALLOPURINOL [Concomitant]
     Indication: HYPERURICAEMIA
     Route: 048
     Dates: start: 20021023
  4. TRANDOLAPRIL [Concomitant]
     Route: 048
  5. LOVOSTATIN [Concomitant]
     Dates: start: 20021023

REACTIONS (1)
  - ATRIAL FIBRILLATION [None]
